FAERS Safety Report 6804990-9 (Version None)
Quarter: 2010Q2

REPORT INFORMATION
  Report Type: 
  Country: None (occurrence: None)
  Receive Date: 20100628
  Receipt Date: 20070720
  Transmission Date: 20101027
  Serious: No
  Sender: FDA-Public Use
  Company Number: US-PFIZER INC-2007062096

PATIENT

DRUGS (2)
  1. CADUET [Suspect]
     Dosage: 10/20 MG
  2. NORVASC [Suspect]

REACTIONS (2)
  - FATIGUE [None]
  - MYALGIA [None]
